FAERS Safety Report 7451889-3 (Version None)
Quarter: 2011Q2

REPORT INFORMATION
  Report Type: 
  Country: None (occurrence: None)
  Receive Date: 20110425
  Receipt Date: 20110413
  Transmission Date: 20111010
  Serious: Yes (Other)
  Sender: FDA-Public Use
  Company Number: 2011SP002318

PATIENT
  Age: 62 Year
  Sex: Male
  Weight: 68 kg

DRUGS (15)
  1. LENDORMIN [Concomitant]
  2. EXCEGRAN [Concomitant]
  3. TERGRETOL [Concomitant]
  4. TEMODAL [Suspect]
     Indication: OLIGODENDROGLIOMA
     Dosage: 140MG;QD;PO;280 MG;QD;PO
     Route: 048
     Dates: start: 20100105, end: 20100215
  5. TEMODAL [Suspect]
     Indication: OLIGODENDROGLIOMA
     Dosage: 140MG;QD;PO;280 MG;QD;PO
     Route: 048
     Dates: start: 20100803, end: 20100807
  6. TEMODAL [Suspect]
     Indication: OLIGODENDROGLIOMA
     Dosage: 140MG;QD;PO;280 MG;QD;PO
     Route: 048
     Dates: start: 20100316, end: 20100320
  7. TEMODAL [Suspect]
     Indication: OLIGODENDROGLIOMA
     Dosage: 140MG;QD;PO;280 MG;QD;PO
     Route: 048
     Dates: start: 20100706, end: 20100710
  8. TEMODAL [Suspect]
     Indication: OLIGODENDROGLIOMA
     Dosage: 140MG;QD;PO;280 MG;QD;PO
     Route: 048
     Dates: start: 20100831, end: 20100904
  9. TEMODAL [Suspect]
     Indication: OLIGODENDROGLIOMA
     Dosage: 140MG;QD;PO;280 MG;QD;PO
     Route: 048
     Dates: start: 20101123, end: 20101127
  10. TEMODAL [Suspect]
     Indication: OLIGODENDROGLIOMA
     Dosage: 140MG;QD;PO;280 MG;QD;PO
     Route: 048
     Dates: start: 20100511, end: 20100515
  11. TEMODAL [Suspect]
     Indication: OLIGODENDROGLIOMA
     Dosage: 140MG;QD;PO;280 MG;QD;PO
     Route: 048
     Dates: start: 20100928, end: 20101002
  12. TEMODAL [Suspect]
     Indication: OLIGODENDROGLIOMA
     Dosage: 140MG;QD;PO;280 MG;QD;PO
     Route: 048
     Dates: start: 20101026, end: 20101030
  13. TEMODAL [Suspect]
     Indication: OLIGODENDROGLIOMA
     Dosage: 140MG;QD;PO;280 MG;QD;PO
     Route: 048
     Dates: start: 20100413, end: 20100417
  14. TEMODAL [Suspect]
     Indication: OLIGODENDROGLIOMA
     Dosage: 140MG;QD;PO;280 MG;QD;PO
     Route: 048
     Dates: start: 20100608, end: 20100612
  15. TENORMIN [Concomitant]

REACTIONS (3)
  - SIGNET-RING CELL CARCINOMA [None]
  - OESOPHAGEAL SQUAMOUS CELL CARCINOMA [None]
  - GASTRIC CANCER [None]
